FAERS Safety Report 9064831 (Version 1)
Quarter: 2013Q1

REPORT INFORMATION
  Report Type: Spontaneous
  Country: GB (occurrence: GB)
  Receive Date: 20130213
  Receipt Date: 20130213
  Transmission Date: 20140127
  Serious: Yes (Hospitalization, Other)
  Sender: FDA-Public Use
  Company Number: GB-TEVA-384353ISR

PATIENT
  Age: 75 Year
  Sex: Female
  Weight: 42 kg

DRUGS (2)
  1. NITROFURANTOIN [Suspect]
     Indication: URINARY TRACT INFECTION
     Route: 048
     Dates: start: 20121111, end: 20121120
  2. NSAIDS [Concomitant]
     Dosage: PRIOR TO 16/11/12 ( THEY WERE STOPPED ON ADMISSION TO COMMUNITY HOSPITAL).
     Dates: end: 20121116

REACTIONS (5)
  - Treatment failure [Recovered/Resolved]
  - Diarrhoea [Unknown]
  - Dehydration [Unknown]
  - Sepsis [Unknown]
  - Renal failure acute [Unknown]
